FAERS Safety Report 5911156-3 (Version None)
Quarter: 2008Q4

REPORT INFORMATION
  Report Type: 
  Country: None (occurrence: None)
  Receive Date: 20081007
  Receipt Date: 20080421
  Transmission Date: 20090506
  Serious: No
  Sender: FDA-Public Use
  Company Number: US-BRISTOL-MYERS SQUIBB COMPANY-14130405

PATIENT
  Age: 62 Year
  Sex: Male

DRUGS (10)
  1. AVAPRO [Suspect]
     Indication: HYPERTENSION
     Route: 048
     Dates: start: 20080315, end: 20080328
  2. AVAPRO [Suspect]
     Indication: DIABETES MELLITUS
     Route: 048
     Dates: start: 20080315, end: 20080328
  3. HYDROCHLOROTHIAZIDE [Concomitant]
  4. CELEBRA [Concomitant]
  5. ZETIA [Concomitant]
  6. CRESTOR [Concomitant]
  7. AMARYL [Concomitant]
  8. METFORMIN HCL [Concomitant]
  9. ACTOS [Concomitant]
  10. FOLIC ACID [Concomitant]

REACTIONS (1)
  - RASH [None]
